FAERS Safety Report 22140972 (Version 1)
Quarter: 2023Q1

REPORT INFORMATION
  Report Type: Spontaneous
  Country: US (occurrence: None)
  Receive Date: 20230324
  Receipt Date: 20230324
  Transmission Date: 20230418
  Serious: Yes (Other)
  Sender: FDA-Public Use
  Company Number: None

PATIENT
  Age: 59 Year
  Sex: Female

DRUGS (19)
  1. AMBRISENTAN [Suspect]
     Active Substance: AMBRISENTAN
     Indication: Pulmonary arterial hypertension
     Dosage: FREQUENCY : DAILY;?
     Route: 048
     Dates: start: 20121126
  2. TADALAFIL [Suspect]
     Active Substance: TADALAFIL
  3. ALVESCO HFA [Concomitant]
  4. ATORVASTATIN [Concomitant]
     Active Substance: ATORVASTATIN
  5. ASPIRIN [Concomitant]
     Active Substance: ASPIRIN
  6. POTASSIUM CHLORIDE [Concomitant]
     Active Substance: POTASSIUM CHLORIDE
  7. METFORMIN [Concomitant]
     Active Substance: METFORMIN HYDROCHLORIDE
  8. NORTRIPTYLINE [Concomitant]
     Active Substance: NORTRIPTYLINE
  9. OMEPRAZOLE [Concomitant]
     Active Substance: OMEPRAZOLE
  10. SPIRONOLACTONE [Concomitant]
     Active Substance: SPIRONOLACTONE
  11. TORSEMIDE [Concomitant]
     Active Substance: TORSEMIDE
  12. CARVEDILOL [Concomitant]
     Active Substance: CARVEDILOL
  13. ALLOPURINOL [Concomitant]
     Active Substance: ALLOPURINOL
  14. FLONASE [Concomitant]
     Active Substance: FLUTICASONE PROPIONATE
  15. COLCHICINE [Concomitant]
     Active Substance: COLCHICINE
  16. VITAMIN D3 [Concomitant]
     Active Substance: CHOLECALCIFEROL
  17. MUCINEX [Concomitant]
     Active Substance: GUAIFENESIN
  18. ASCORBIC ACID [Concomitant]
     Active Substance: ASCORBIC ACID
  19. VITAMIN B12 [Concomitant]
     Active Substance: CYANOCOBALAMIN

REACTIONS (1)
  - COVID-19 [None]

NARRATIVE: CASE EVENT DATE: 20230310
